FAERS Safety Report 7216470-X (Version None)
Quarter: 2011Q1

REPORT INFORMATION
  Report Type: 
  Country: None (occurrence: None)
  Receive Date: 20110107
  Receipt Date: 20101223
  Transmission Date: 20110831
  Serious: Yes (Other)
  Sender: FDA-Public Use
  Company Number: US-GILEAD-2011-0034953

PATIENT
  Sex: Female

DRUGS (1)
  1. LETAIRIS [Suspect]
     Indication: PULMONARY ARTERIAL HYPERTENSION
     Route: 048
     Dates: start: 20100608, end: 20101001

REACTIONS (4)
  - RESPIRATORY ARREST [None]
  - UNEVALUABLE EVENT [None]
  - DYSPNOEA [None]
  - OEDEMA [None]
